FAERS Safety Report 6077624-1 (Version None)
Quarter: 2009Q1

REPORT INFORMATION
  Report Type: 
  Country: None (occurrence: None)
  Receive Date: 20090211
  Receipt Date: 20090130
  Transmission Date: 20090719
  Serious: Yes (Life-Threatening, Hospitalization)
  Sender: FDA-Public Use
  Company Number: JHP200900008

PATIENT
  Age: 39 Year
  Sex: Male

DRUGS (7)
  1. DANTRIUM [Suspect]
     Indication: INTENTIONAL SELF-INJURY
     Dosage: ORAL
     Route: 048
  2. AMITRIPTYLINE HYDROCHLORIDE [Concomitant]
  3. BROMAZINIL (BROMAZEPAM) [Concomitant]
  4. DRIDASE (OXYBUTYNIN HYDROCHLORIDE) [Concomitant]
  5. LIORESAL [Concomitant]
  6. MICTONORM (PROPIVERINE HYDROCHLORIDE) [Concomitant]
  7. TRANSDERM PATCH - TRANSTEC (GLYCERYL TRINITRATE) [Concomitant]

REACTIONS (7)
  - ANXIETY [None]
  - DISORIENTATION [None]
  - HYPOTONIA [None]
  - LOSS OF CONSCIOUSNESS [None]
  - MYDRIASIS [None]
  - SUICIDE ATTEMPT [None]
  - VOMITING [None]
